FAERS Safety Report 13528359 (Version 1)
Quarter: 2017Q2

REPORT INFORMATION
  Report Type: Report from Study
  Country: PL (occurrence: PL)
  Receive Date: 20170509
  Receipt Date: 20170509
  Transmission Date: 20170830
  Serious: Yes (Death, Other)
  Sender: FDA-Public Use
  Company Number: PL-CELGENEUS-POL-20170500149

PATIENT
  Age: 63 Year
  Sex: Male

DRUGS (1)
  1. AZACITIDINE. [Suspect]
     Active Substance: AZACITIDINE
     Indication: MYELODYSPLASTIC SYNDROME
     Route: 065
     Dates: start: 20161102

REACTIONS (4)
  - Nausea [Unknown]
  - Death [Fatal]
  - Vomiting [Unknown]
  - Injection site reaction [Unknown]

NARRATIVE: CASE EVENT DATE: 20161210
